FAERS Safety Report 7657901 (Version 2)
Quarter: 2016Q2

REPORT INFORMATION
  Report Type: Report from Study
  Country: IT (occurrence: IT)
  Receive Date: 20101105
  Receipt Date: 20160613
  Transmission Date: 20160815
  Serious: Yes (Hospitalization, Other)
  Sender: FDA-Public Use
  Company Number: IT-JNJFOC-20101006924

PATIENT
  Age: 46 Year
  Sex: Female
  Weight: 63 kg

DRUGS (2)
  1. ENTEROSAN [Concomitant]
     Indication: COLITIS ULCERATIVE
     Route: 048
     Dates: start: 1990
  2. REMICADE [Suspect]
     Active Substance: INFLIXIMAB
     Indication: COLITIS ULCERATIVE
     Route: 042
     Dates: start: 20080215, end: 20091126

REACTIONS (1)
  - Astrocytoma [Unknown]

NARRATIVE: CASE EVENT DATE: 20100909
